FAERS Safety Report 5850723-2 (Version None)
Quarter: 2008Q3

REPORT INFORMATION
  Report Type: 
  Country: None (occurrence: None)
  Receive Date: 20080819
  Receipt Date: 20080819
  Transmission Date: 20090109
  Serious: Yes (Other)
  Sender: FDA-Public Use
  Company Number: None

PATIENT
  Age: 66 Year
  Sex: Female
  Weight: 99.7913 kg

DRUGS (1)
  1. DOXIL [Suspect]
     Indication: UTERINE CANCER
     Dosage: 80 MG. EVERY 4 WEEKS IV DRIP
     Route: 041
     Dates: start: 20080430, end: 20080730

REACTIONS (8)
  - BURNING SENSATION [None]
  - CRYING [None]
  - EAR DISCOMFORT [None]
  - ERYTHEMA [None]
  - EYE IRRITATION [None]
  - PAIN [None]
  - SKIN EXFOLIATION [None]
  - THERAPEUTIC RESPONSE DECREASED [None]
